FAERS Safety Report 4959176-X (Version None)
Quarter: 2006Q1

REPORT INFORMATION
  Report Type: 
  Country: None (occurrence: None)
  Receive Date: 20060330
  Receipt Date: 20060330
  Transmission Date: 20060701
  Serious: No
  Sender: FDA-Public Use
  Company Number: None

PATIENT
  Age: 27 Year
  Sex: Male
  Weight: 77.1115 kg

DRUGS (4)
  1. VALIUM [Suspect]
     Indication: SEDATIVE THERAPY
     Dosage: AVAILABLE FROM MEDICAL RECORD IV IV BOLUS
     Route: 040
     Dates: start: 20040201, end: 20040201
  2. VALIUM [Suspect]
     Indication: SEDATIVE THERAPY
     Dosage: AVAILABLE FROM MEDICAL RECORD IV IV BOLUS
     Route: 040
     Dates: start: 20050601, end: 20050601
  3. DEMEROL [Concomitant]
  4. BENADRIL [Concomitant]

REACTIONS (3)
  - PHLEBITIS [None]
  - THROMBOSIS [None]
  - VEIN DISORDER [None]
